FAERS Safety Report 10162649 (Version 1)
Quarter: 2014Q2

REPORT INFORMATION
  Report Type: Spontaneous
  Country: US (occurrence: US)
  Receive Date: 20140509
  Receipt Date: 20140509
  Transmission Date: 20141212
  Serious: No
  Sender: FDA-Public Use
  Company Number: US-PFIZER INC-2014127564

PATIENT
  Sex: Female

DRUGS (2)
  1. GENOTROPIN [Suspect]
     Dosage: UNK
  2. GENOTROPIN [Suspect]
     Dosage: 1 MG, 1X/DAY

REACTIONS (3)
  - Fat tissue increased [Unknown]
  - Hunger [Unknown]
  - Weight increased [Unknown]
